FAERS Safety Report 26057603 (Version 1)
Quarter: 2025Q4

REPORT INFORMATION
  Report Type: Spontaneous
  Country: US (occurrence: None)
  Receive Date: 20251118
  Receipt Date: 20251118
  Transmission Date: 20260117
  Serious: Yes (Other)
  Sender: UCB
  Company Number: US-UCBSA-2025011916

PATIENT
  Weight: 81.6 kg

DRUGS (11)
  1. VIMPAT [Suspect]
     Active Substance: LACOSAMIDE
     Indication: Product used for unknown indication
     Dosage: 150 MILLIGRAM, 2X/DAY (BID) EVERY 12 HOURS
  2. KLONOPIN [Suspect]
     Active Substance: CLONAZEPAM
     Indication: Seizure
     Dosage: 0.5 MILLIGRAM, 2X/DAY (BID)
  3. FYCOMPA [Suspect]
     Active Substance: PERAMPANEL
     Indication: Product used for unknown indication
     Dosage: 10 MILLIGRAM, ONCE DAILY (QD)
  4. ALBUTEROL [Concomitant]
     Active Substance: ALBUTEROL
     Indication: Product used for unknown indication
     Dosage: 90 MICROGRAM
  5. IBUPROFEN [Concomitant]
     Active Substance: IBUPROFEN
     Indication: Product used for unknown indication
     Dosage: 600 MILLIGRAM
  6. ATIVAN [Concomitant]
     Active Substance: LORAZEPAM
     Indication: Product used for unknown indication
     Dosage: UNK
  7. LO LOESTRIN FE [Concomitant]
     Active Substance: ETHINYL ESTRADIOL\NORETHINDRONE ACETATE
     Indication: Product used for unknown indication
     Dosage: 10 MICROGRAM, ONCE DAILY (QD)
  8. CLONAZEPAM [Concomitant]
     Active Substance: CLONAZEPAM
     Indication: Product used for unknown indication
     Dosage: 0.5 MILLIGRAM, 2X/DAY (BID)
  9. ZARONTIN [Concomitant]
     Active Substance: ETHOSUXIMIDE
     Indication: Product used for unknown indication
     Dosage: 250 MILLIGRAM, 2X/DAY (BID)
  10. FLUTICASONE PROPIONATE [Concomitant]
     Active Substance: FLUTICASONE PROPIONATE
     Indication: Product used for unknown indication
     Dosage: 50 MICROGRAM, 1 SPRAY INTO EACH NOSTRIL
  11. FOLIC ACID [Concomitant]
     Active Substance: FOLIC ACID
     Indication: Product used for unknown indication
     Dosage: 1 MILLIGRAM, ONCE DAILY (QD)

REACTIONS (5)
  - Seizure [Recovered/Resolved]
  - Head injury [Recovered/Resolved]
  - Feeling abnormal [Unknown]
  - Weight increased [Unknown]
  - Rash [Recovering/Resolving]
